FAERS Safety Report 25954931 (Version 2)
Quarter: 2025Q4

REPORT INFORMATION
  Report Type: Spontaneous
  Country: AU (occurrence: AU)
  Receive Date: 20251024
  Receipt Date: 20251028
  Transmission Date: 20260117
  Serious: Yes (Other)
  Sender: SANDOZ
  Company Number: None

PATIENT
  Age: 52 Year
  Sex: Male

DRUGS (8)
  1. CLONIDINE HYDROCHLORIDE [Suspect]
     Active Substance: CLONIDINE HYDROCHLORIDE
     Indication: Back pain
     Dosage: UNK
     Route: 054
  2. DULOXETINE HYDROCHLORIDE [Suspect]
     Active Substance: DULOXETINE HYDROCHLORIDE
     Indication: Back pain
     Dosage: UNK
     Route: 065
  3. INDOMETHACIN [Suspect]
     Active Substance: INDOMETHACIN
     Indication: Back pain
     Dosage: UNK
     Route: 054
  4. OXYCODONE HYDROCHLORIDE [Suspect]
     Active Substance: OXYCODONE HYDROCHLORIDE
     Indication: Back pain
     Dosage: 10 MG
     Route: 048
  5. OXAZEPAM [Suspect]
     Active Substance: OXAZEPAM
     Indication: Back pain
     Dosage: UNK
     Route: 065
  6. ACETAMINOPHEN [Suspect]
     Active Substance: ACETAMINOPHEN
     Indication: Back pain
     Dosage: UNK
     Route: 048
  7. GABAPENTIN [Concomitant]
     Active Substance: GABAPENTIN
     Indication: Product used for unknown indication
     Dosage: UNK
     Route: 065
  8. TAPENTADOL [Concomitant]
     Active Substance: TAPENTADOL
     Indication: Product used for unknown indication
     Dosage: UNK
     Route: 065

REACTIONS (4)
  - Drug dependence [Not Recovered/Not Resolved]
  - Constipation [Unknown]
  - Inadequate analgesia [Unknown]
  - Nausea [Unknown]
